FAERS Safety Report 5291930-X (Version None)
Quarter: 2007Q2

REPORT INFORMATION
  Report Type: 
  Country: None (occurrence: None)
  Receive Date: 20070410
  Receipt Date: 20070326
  Transmission Date: 20071010
  Serious: Yes (Hospitalization, Other)
  Sender: FDA-Public Use
  Company Number: ES-JNJFOC-20070306751

PATIENT
  Age: 44 Year
  Sex: Male

DRUGS (1)
  1. INFLIXIMAB [Suspect]
     Indication: ANKYLOSING SPONDYLITIS
     Dosage: 3 DOSES

REACTIONS (5)
  - ACUTE RESPIRATORY DISTRESS SYNDROME [None]
  - DISSEMINATED TUBERCULOSIS [None]
  - HISTIOCYTOSIS HAEMATOPHAGIC [None]
  - IMMUNE RECONSTITUTION SYNDROME [None]
  - SEPTIC SHOCK [None]
